FAERS Safety Report 9217716 (Version 1)
Quarter: 2013Q2

REPORT INFORMATION
  Report Type: Spontaneous
  Country: US (occurrence: US)
  Receive Date: 20130408
  Receipt Date: 20130408
  Transmission Date: 20140414
  Serious: No
  Sender: FDA-Public Use
  Company Number: US-PFIZER INC-2013109857

PATIENT
  Age: 85 Year
  Sex: Male
  Weight: 68.03 kg

DRUGS (2)
  1. LYRICA [Suspect]
     Indication: DIABETIC NEUROPATHY
     Dosage: 75 MG, SINGLE
     Route: 048
     Dates: start: 20130403, end: 20130403
  2. PLAVIX [Concomitant]
     Dosage: UNK

REACTIONS (3)
  - Expired drug administered [Unknown]
  - Dry mouth [Recovering/Resolving]
  - Balance disorder [Recovering/Resolving]
